FAERS Safety Report 7514307-2 (Version None)
Quarter: 2011Q2

REPORT INFORMATION
  Report Type: 
  Country: None (occurrence: None)
  Receive Date: 20110601
  Receipt Date: 20060922
  Transmission Date: 20111010
  Serious: No
  Sender: FDA-Public Use
  Company Number: US-BIOGENIDEC-2006BI013627

PATIENT
  Age: 63 Year
  Sex: Female

DRUGS (10)
  1. OXYBUTYNIN [Concomitant]
  2. AMANTADINE HCL [Concomitant]
  3. RITALIN [Concomitant]
  4. ZOLOFT [Concomitant]
  5. NORVASC [Concomitant]
  6. TYSABRI [Suspect]
     Route: 042
     Dates: start: 20060822, end: 20060922
  7. PREMARIN [Concomitant]
  8. TYSABRI [Suspect]
     Indication: MULTIPLE SCLEROSIS
     Route: 042
     Dates: start: 20050201, end: 20050201
  9. MEDROXYPROGESTERONE [Concomitant]
  10. TOPAMAX [Concomitant]

REACTIONS (8)
  - DIZZINESS [None]
  - NEUTRALISING ANTIBODIES POSITIVE [None]
  - SKIN DISCOLOURATION [None]
  - HYPERSENSITIVITY [None]
  - OEDEMA PERIPHERAL [None]
  - FLUSHING [None]
  - SWELLING FACE [None]
  - DYSPNOEA [None]
